FAERS Safety Report 10055039 (Version 1)
Quarter: 2014Q2

REPORT INFORMATION
  Report Type: Spontaneous
  Country: US (occurrence: US)
  Receive Date: 20140402
  Receipt Date: 20140402
  Transmission Date: 20141212
  Serious: No
  Sender: FDA-Public Use
  Company Number: US-SA-2014SA031615

PATIENT
  Age: 36 Year
  Sex: Female

DRUGS (8)
  1. AUBAGIO [Suspect]
     Indication: MULTIPLE SCLEROSIS
     Route: 065
     Dates: start: 20130211
  2. LORTAB [Concomitant]
     Dosage: STRENGTH: 7.5/500
     Route: 048
  3. FIORICET [Concomitant]
     Route: 048
  4. MECLIZINE [Concomitant]
     Route: 048
  5. GABAPENTIN [Concomitant]
     Route: 048
  6. TRAMADOL [Concomitant]
     Route: 048
  7. BACLOFEN [Concomitant]
     Route: 048
  8. CYMBALTA [Concomitant]
     Route: 048

REACTIONS (2)
  - Alopecia [Recovering/Resolving]
  - Condition aggravated [Recovering/Resolving]
